FAERS Safety Report 10289631 (Version 2)
Quarter: 2014Q3

REPORT INFORMATION
  Report Type: Spontaneous
  Country: US (occurrence: US)
  Receive Date: 20140710
  Receipt Date: 20140716
  Transmission Date: 20150326
  Serious: Yes (Hospitalization)
  Sender: FDA-Public Use
  Company Number: US-ASTRAZENECA-2014SE48419

PATIENT
  Age: 73 Year
  Sex: Female
  Weight: 47.2 kg

DRUGS (15)
  1. ULTRAM [Concomitant]
     Active Substance: TRAMADOL HYDROCHLORIDE
     Indication: BACK INJURY
     Dosage: NR NR
  2. SYMBICORT [Suspect]
     Active Substance: BUDESONIDE\FORMOTEROL FUMARATE DIHYDRATE
     Indication: CHRONIC OBSTRUCTIVE PULMONARY DISEASE
     Dosage: 80/4.5, SIX TIMES DAILY
     Route: 055
     Dates: end: 20140618
  3. LISINOPRIL. [Suspect]
     Active Substance: LISINOPRIL
     Indication: BLOOD PRESSURE ABNORMAL
     Route: 048
  4. GABAPENTIN. [Concomitant]
     Active Substance: GABAPENTIN
     Indication: NEURALGIA
  5. DUONEBS [Concomitant]
     Indication: CHRONIC OBSTRUCTIVE PULMONARY DISEASE
     Dosage: 0.5MG/2.5MG QID
  6. SYMBICORT [Suspect]
     Active Substance: BUDESONIDE\FORMOTEROL FUMARATE DIHYDRATE
     Indication: CHRONIC OBSTRUCTIVE PULMONARY DISEASE
     Dosage: 160MCG, SIX TIMES DAILY
     Route: 055
     Dates: end: 20140618
  7. GLUCOSAMINE CHONDROITIN [Concomitant]
     Active Substance: CHONDROITIN SULFATE (BOVINE)\GLUCOSAMINE HYDROCHLORIDE
     Dosage: NR DAILY
  8. TRIVITA [Concomitant]
     Indication: BONE DISORDER
     Dosage: 2 TABS DAILY
  9. ULTRAM [Concomitant]
     Active Substance: TRAMADOL HYDROCHLORIDE
     Indication: BACK INJURY
     Dosage: NR NR
  10. ALBUTEROL NEBULIZER [Concomitant]
     Active Substance: ALBUTEROL
     Indication: CHRONIC OBSTRUCTIVE PULMONARY DISEASE
     Dosage: 0.83 QID
     Route: 055
  11. MULTIVITAMINS [Concomitant]
     Active Substance: VITAMINS
     Dosage: NR DAILY
  12. TYLENOL EXTRA STRENGTH [Concomitant]
     Active Substance: ACETAMINOPHEN
     Indication: PAIN
  13. LOTRIMIN [Concomitant]
     Active Substance: CLOTRIMAZOLE
     Indication: SKIN DISORDER
     Dosage: NR DAILY
  14. VIT B12 FOLIC ACID [Concomitant]
     Dosage: NR DAILY
     Route: 050
  15. ZOLOFT [Concomitant]
     Active Substance: SERTRALINE HYDROCHLORIDE
     Indication: DEPRESSION

REACTIONS (6)
  - Intentional product misuse [Unknown]
  - Off label use [Unknown]
  - Musculoskeletal chest pain [Not Recovered/Not Resolved]
  - Pneumonia [Unknown]
  - Diaphragmalgia [Not Recovered/Not Resolved]
  - Sleep disorder [Unknown]

NARRATIVE: CASE EVENT DATE: 201406
